FAERS Safety Report 8871391 (Version 2)
Quarter: 2013Q2

REPORT INFORMATION
  Report Type: Spontaneous
  Country: US (occurrence: None)
  Receive Date: 20120426
  Receipt Date: 20120703
  Transmission Date: 20140414
  Serious: Yes (Other)
  Sender: FDA-Public Use
  Company Number: PHEH2012US003628

PATIENT
  Age: 37 Year
  Sex: Male
  Weight: 97.5 kg

DRUGS (3)
  1. GILENYA [Suspect]
     Indication: MULTIPLE SCLEROSIS
     Route: 048
     Dates: start: 20120210
  2. RITALIN (METHYLPHENIDATE HYDROCHLORIDE) [Concomitant]
  3. VITAMIN D (ERGOCALCIFEROL) [Concomitant]

REACTIONS (1)
  - Bradycardia [None]
